FAERS Safety Report 14032771 (Version 1)
Quarter: 2017Q4

REPORT INFORMATION
  Report Type: Spontaneous
  Country: US (occurrence: US)
  Receive Date: 20171002
  Receipt Date: 20171002
  Transmission Date: 20180321
  Serious: Yes (Life-Threatening, Hospitalization)
  Sender: FDA-Public Use
  Company Number: US-MYLANLABS-2017M1061080

PATIENT
  Age: 41 Year
  Sex: Female

DRUGS (1)
  1. LIDOCAINE. [Suspect]
     Active Substance: LIDOCAINE
     Indication: PAIN
     Dosage: CONCENTRATION 1%, RECEIVED 3 INJECTIONS TOTALING 9ML
     Route: 030

REACTIONS (2)
  - Stress cardiomyopathy [Recovering/Resolving]
  - Respiratory failure [Recovering/Resolving]
